FAERS Safety Report 5083399-5 (Version None)
Quarter: 2006Q3

REPORT INFORMATION
  Report Type: 
  Country: None (occurrence: None)
  Receive Date: 20060816
  Receipt Date: 20060816
  Transmission Date: 20061208
  Serious: Yes (Other)
  Sender: FDA-Public Use
  Company Number: None

PATIENT
  Age: 59 Year
  Sex: Male
  Weight: 58.9676 kg

DRUGS (1)
  1. HYDROMORPHONE  2 MG IV [Suspect]
     Indication: PAIN
     Dosage: 2 MG Q 4 HOURS PRN P  IV BOLUS   1 DOSE
     Route: 040
     Dates: start: 20060812, end: 20060812

REACTIONS (2)
  - PRURITUS [None]
  - RASH [None]
